FAERS Safety Report 12367972 (Version 1)
Quarter: 2016Q2

REPORT INFORMATION
  Report Type: Spontaneous
  Country: FR (occurrence: FR)
  Receive Date: 20160513
  Receipt Date: 20160513
  Transmission Date: 20160815
  Serious: Yes (Hospitalization)
  Sender: FDA-Public Use
  Company Number: FR-CONCORDIA PHARMACEUTICALS INC.-CO-PL-FR-2015-363

PATIENT
  Age: 52 Year
  Sex: Female

DRUGS (6)
  1. MELAXOSE [Concomitant]
     Active Substance: LACTULOSE\PARAFFIN
     Dates: start: 20150930, end: 20151002
  2. SKENAN [Concomitant]
     Active Substance: MORPHINE SULFATE
     Dates: start: 20150930, end: 20151002
  3. SOLU-MEDROL [Concomitant]
     Active Substance: METHYLPREDNISOLONE SODIUM SUCCINATE
     Dates: start: 20151002, end: 20151005
  4. PLAQUENIL [Suspect]
     Active Substance: HYDROXYCHLOROQUINE SULFATE
     Indication: SJOGREN^S SYNDROME
     Route: 048
     Dates: start: 20150918, end: 20151010
  5. ACTISKENAN [Concomitant]
     Active Substance: MORPHINE SULFATE
     Dates: start: 20150930, end: 20151002
  6. CORTANCYL [Concomitant]
     Active Substance: PREDNISONE
     Dates: start: 20150918, end: 20151009

REACTIONS (6)
  - Pyrexia [None]
  - Oedema [None]
  - Drug eruption [Recovered/Resolved]
  - Rash maculo-papular [None]
  - Hypersensitivity [None]
  - General physical health deterioration [None]

NARRATIVE: CASE EVENT DATE: 20151008
